FAERS Safety Report 6863221 (Version 9)
Quarter: 2013Q1

REPORT INFORMATION
  Report Type: Spontaneous
  Country: US (occurrence: US)
  Receive Date: 20070524
  Receipt Date: 20130211
  Transmission Date: 20140127
  Serious: Yes (Other)
  Sender: FDA-Public Use
  Company Number: US-BIOGENIDEC-2007BI010355

PATIENT
  Age: 48 Year
  Sex: Female

DRUGS (11)
  1. TYSABRI [Suspect]
     Route: 042
     Dates: start: 20061107, end: 20070410
  2. TYSABRI [Suspect]
     Indication: MULTIPLE SCLEROSIS
     Route: 042
     Dates: start: 20061107, end: 20070410
  3. TYSABRI [Suspect]
     Route: 042
     Dates: start: 20071204, end: 20081208
  4. TYSABRI [Suspect]
     Indication: MULTIPLE SCLEROSIS
     Route: 042
     Dates: start: 20071204, end: 20081208
  5. TYSABRI [Suspect]
     Route: 042
     Dates: start: 20100802, end: 20120103
  6. TYSABRI [Suspect]
     Indication: MULTIPLE SCLEROSIS
     Route: 042
     Dates: start: 20100802, end: 20120103
  7. WELLBUTRIN [Concomitant]
  8. MOTRIN [Concomitant]
  9. AMANTADINE [Concomitant]
  10. AMBIEN [Concomitant]
  11. IMIPRAMINE [Concomitant]

REACTIONS (12)
  - Colorectal cancer metastatic [Recovered/Resolved]
  - Ureteric cancer metastatic [Not Recovered/Not Resolved]
  - Haematochezia [Recovered/Resolved]
  - Hypoaesthesia [Not Recovered/Not Resolved]
  - Paraesthesia [Not Recovered/Not Resolved]
  - Dysgraphia [Not Recovered/Not Resolved]
  - Musculoskeletal stiffness [Not Recovered/Not Resolved]
  - Arthropathy [Not Recovered/Not Resolved]
  - Dysarthria [Not Recovered/Not Resolved]
  - Balance disorder [Not Recovered/Not Resolved]
  - Multiple sclerosis [Not Recovered/Not Resolved]
  - Blood iron decreased [Unknown]
